FAERS Safety Report 9186926 (Version 2)
Quarter: 2013Q1

REPORT INFORMATION
  Report Type: Spontaneous
  Country: US (occurrence: US)
  Receive Date: 20130325
  Receipt Date: 20130325
  Transmission Date: 20140127
  Serious: Yes (Death, Hospitalization)
  Sender: FDA-Public Use
  Company Number: US-JNJFOC-20090802358

PATIENT
  Age: 51 Year
  Sex: Female

DRUGS (3)
  1. MOTRIN [Suspect]
     Indication: COMPLETED SUICIDE
     Dosage: 250 TABLETS, 6/12/01
     Route: 048
  2. ADVIL [Suspect]
     Indication: COMPLETED SUICIDE
     Dosage: 50 TABLETS, 6/12/01
     Route: 048
  3. ASPIRIN [Suspect]
     Indication: COMPLETED SUICIDE
     Dosage: 162.5GM, 6/12/01
     Route: 048

REACTIONS (12)
  - Suicide attempt [Fatal]
  - Intentional overdose [Fatal]
  - Hostility [Fatal]
  - Tachycardia [Fatal]
  - Hyperventilation [Fatal]
  - Electrocardiogram abnormal [Fatal]
  - Acidosis [Fatal]
  - Leukocytosis [Fatal]
  - Toxicity to various agents [None]
  - Cardio-respiratory arrest [None]
  - Electrocardiogram QRS complex prolonged [None]
  - Completed suicide [None]
